FAERS Safety Report 4614022-9 (Version None)
Quarter: 2005Q1

REPORT INFORMATION
  Report Type: 
  Country: None (occurrence: None)
  Receive Date: 20050321
  Receipt Date: 20050311
  Transmission Date: 20050727
  Serious: Yes (Hospitalization)
  Sender: FDA-Public Use
  Company Number: JP-ROCHE-398938

PATIENT
  Age: 92 Year
  Sex: Male

DRUGS (4)
  1. TAMIFLU [Suspect]
     Indication: INFLUENZA
     Route: 048
     Dates: start: 20050308, end: 20050308
  2. TAMIFLU [Suspect]
     Route: 048
     Dates: start: 20050307, end: 20050307
  3. SOLANTAL [Concomitant]
     Route: 048
  4. UNSPECIFIED DRUG [Concomitant]
     Indication: PEPTIC ULCER
     Dosage: DRUG REPORTED AS ^AGENTS FOR PEPTIC ULCER^
     Route: 065

REACTIONS (2)
  - CONVULSION [None]
  - DEHYDRATION [None]
